FAERS Safety Report 8809334 (Version 2)
Quarter: 2012Q4

REPORT INFORMATION
  Report Type: 
  Country: DE (occurrence: DE)
  Receive Date: 20120926
  Receipt Date: 20121016
  Transmission Date: 20130627
  Serious: Yes (Hospitalization, Other)
  Sender: FDA-Public Use
  Company Number: DE-VERTEX PHARMACEUTICAL INC.-2012-021809

PATIENT

DRUGS (13)
  1. INCIVO [Suspect]
     Indication: HEPATITIS C
     Dosage: UNK
     Route: 048
  2. INCIVO [Suspect]
     Dosage: Dosage Form: Tablet
     Route: 048
  3. PEGYLATED INTERFERON [Suspect]
     Indication: HEPATITIS C
  4. RIBAVIRIN [Suspect]
     Indication: HEPATITIS C
     Dosage: UNK
     Route: 065
  5. RIBAVIRIN [Suspect]
     Dosage: Dosage Form: Unspecified
  6. TACROLIMUS [Suspect]
     Indication: IMMUNOSUPPRESSANT DRUG THERAPY
     Dosage: 0.5 mg, UNK
  7. TACROLIMUS [Suspect]
     Dosage: Dosage Form: Unspecified
  8. CYCLOSPORINE [Suspect]
     Indication: IMMUNOSUPPRESSANT DRUG THERAPY
     Dosage: UNK, qd
     Route: 065
  9. SIROLIMUS [Suspect]
     Indication: IMMUNOSUPPRESSANT DRUG THERAPY
     Dosage: Dosage Form: Unspecified
     Route: 065
  10. MYCOPHENOLATE MOFETIL [Suspect]
     Indication: IMMUNOSUPPRESSANT DRUG THERAPY
     Dosage: UNK
     Route: 065
  11. MYCOPHENOLATE MOFETIL [Suspect]
     Dosage: Dosage Form: Unspecified
  12. STEROIDS NOS [Suspect]
     Indication: IMMUNOSUPPRESSANT DRUG THERAPY
     Dosage: UNK
     Route: 065
  13. STEROIDS NOS [Suspect]
     Dosage: Dosage Form: Unspecified

REACTIONS (9)
  - Diabetes mellitus [Unknown]
  - Renal failure [Unknown]
  - Bacterial infection [Unknown]
  - Enteritis infectious [Unknown]
  - Leukopenia [Unknown]
  - Hepatic enzyme increased [Unknown]
  - Overdose [Unknown]
  - Blood creatinine increased [Unknown]
  - Skin reaction [Unknown]
